FAERS Safety Report 8052429-0 (Version None)
Quarter: 2012Q1

REPORT INFORMATION
  Report Type: 
  Country: None (occurrence: None)
  Receive Date: 20120118
  Receipt Date: 20120116
  Transmission Date: 20120608
  Serious: Yes (Other)
  Sender: FDA-Public Use
  Company Number: JP-PFIZER INC-2011284741

PATIENT
  Age: 50 Year
  Sex: Male

DRUGS (2)
  1. GABAPENTIN [Suspect]
     Dosage: UNK
  2. GABAPENTIN [Suspect]
     Dosage: 600 MG, 3X/DAY

REACTIONS (3)
  - RENAL IMPAIRMENT [None]
  - MUSCLE SPASMS [None]
  - BLOOD CREATININE INCREASED [None]
